FAERS Safety Report 5510467-3 (Version None)
Quarter: 2007Q4

REPORT INFORMATION
  Report Type: 
  Country: None (occurrence: None)
  Receive Date: 20071108
  Receipt Date: 20071024
  Transmission Date: 20080405
  Serious: Yes (Other)
  Sender: FDA-Public Use
  Company Number: ES-GENENTECH-250301

PATIENT
  Age: 36 Year
  Sex: Female

DRUGS (1)
  1. LUCENTIS [Suspect]
     Dosage: 0.5 MG, UNK
     Route: 031

REACTIONS (3)
  - PARAESTHESIA [None]
  - RASH [None]
  - WHEEZING [None]
